FAERS Safety Report 17279073 (Version 5)
Quarter: 2023Q1

REPORT INFORMATION
  Report Type: Spontaneous
  Country: JP (occurrence: JP)
  Receive Date: 20200116
  Receipt Date: 20230206
  Transmission Date: 20230418
  Serious: Yes (Hospitalization, Other)
  Sender: FDA-Public Use
  Company Number: JP-SANOFI-2019SA296402

PATIENT
  Age: 15 Month
  Sex: Female
  Weight: 7.6 kg

DRUGS (33)
  1. SABRIL [Suspect]
     Active Substance: VIGABATRIN
     Indication: Infantile spasms
     Dosage: 128.4 MG/KG/DAY (ACTUAL AMOUNT, 1100 MG/DAY), BID
     Route: 048
     Dates: start: 20190322, end: 20190702
  2. SABRIL [Suspect]
     Active Substance: VIGABATRIN
     Dosage: 47.7MG/KG/DAY (ACTUAL AMOUNT, 350 MG/DAY), BID
     Route: 048
     Dates: start: 20181016, end: 20181028
  3. SABRIL [Suspect]
     Active Substance: VIGABATRIN
     Dosage: 68.5 MG/KG/DAY (ACTUAL AMOUNT, 500 MG/DAY), BID
     Route: 048
     Dates: start: 20181029, end: 20181101
  4. SABRIL [Suspect]
     Active Substance: VIGABATRIN
     Dosage: 59.2 MG/KG/DAY (ACTUAL AMOUNT, 450 MG/DAY), BID
     Route: 048
     Dates: start: 20181102, end: 20181121
  5. SABRIL [Suspect]
     Active Substance: VIGABATRIN
     Dosage: 62.5 MG/KG/DAY (ACTUAL AMOUNT, 500 MG/DAY), BID
     Route: 048
     Dates: start: 20181122, end: 20181202
  6. SABRIL [Suspect]
     Active Substance: VIGABATRIN
     Dosage: 68 MG/KG/DAY (ACTUAL AMOUNT, 550 MG/DAY), BID
     Route: 048
     Dates: start: 20181203, end: 20190117
  7. SABRIL [Suspect]
     Active Substance: VIGABATRIN
     Dosage: 85.4 MG/KG/DAY (ACTUAL AMOUNT, 700 MG/DAY), BID
     Route: 048
     Dates: start: 20190118, end: 20190123
  8. SABRIL [Suspect]
     Active Substance: VIGABATRIN
     Dosage: 100 MG/KG/DAY (ACTUAL AMOUNT, 820 MG/DAY), BID
     Route: 048
     Dates: start: 20190124, end: 20190207
  9. SABRIL [Suspect]
     Active Substance: VIGABATRIN
     Dosage: 117.6 MG/KG/DAY (ACTUAL AMOUNT, 1000 MG/DAY), BID
     Route: 048
     Dates: start: 20190208, end: 20190221
  10. SABRIL [Suspect]
     Active Substance: VIGABATRIN
     Dosage: 129.4 MG/KG/DAY (ACTUAL AMOUNT, 1100 MG/DAY), BID
     Route: 048
     Dates: start: 20190222, end: 20190307
  11. SABRIL [Suspect]
     Active Substance: VIGABATRIN
     Dosage: 116.3 MG/KG/DAY (ACTUAL AMOUNT, 1000 MG/DAY), BID
     Route: 048
     Dates: start: 20190308, end: 20190321
  12. SABRIL [Suspect]
     Active Substance: VIGABATRIN
     Dosage: 100MG/KG/DAY (ACTUAL AMOUNT, 800 MG/DAY), BID
     Route: 048
     Dates: start: 20190703, end: 20190809
  13. SABRIL [Suspect]
     Active Substance: VIGABATRIN
     Dosage: 62.5 MG/KG/DAY (ACTUAL AMOUNT, 500 MG/DAY), BID
     Route: 048
     Dates: start: 20190810, end: 20191001
  14. SABRIL [Suspect]
     Active Substance: VIGABATRIN
     Dosage: 29.8 MG/KG/DAY (ACTUAL AMOUNT, :250 MG/DAY),QD
     Route: 048
     Dates: start: 20191002, end: 20191005
  15. SABRIL [Suspect]
     Active Substance: VIGABATRIN
     Dosage: DAILY DOSAGE: 130 MG/KG
     Route: 048
     Dates: start: 201903
  16. SABRIL [Suspect]
     Active Substance: VIGABATRIN
     Dosage: DAILY DOSAGE: 95 MG/KG
     Route: 048
     Dates: start: 2019, end: 2019
  17. SABRIL [Suspect]
     Active Substance: VIGABATRIN
     Dosage: DAILY DOSAGE: 60 MG/KG
     Route: 048
     Dates: start: 2019
  18. NITRAZEPAM [Concomitant]
     Active Substance: NITRAZEPAM
     Indication: Infantile spasms
     Dosage: DAILY DOSE: 3 MG
     Route: 048
     Dates: start: 20181008, end: 20181016
  19. NITRAZEPAM [Concomitant]
     Active Substance: NITRAZEPAM
     Dosage: DAILY DOSE: 1.5 MG
     Route: 048
     Dates: start: 20181017, end: 20181019
  20. ZONISAMIDE [Concomitant]
     Active Substance: ZONISAMIDE
     Indication: Infantile spasms
     Dosage: DAILY DOSE: 45 MG
     Route: 048
  21. LEVETIRACETAM [Concomitant]
     Active Substance: LEVETIRACETAM
     Indication: Infantile spasms
     Dosage: DAILY DOSE: 300 MG
     Route: 048
     Dates: start: 20180929, end: 20190111
  22. LEVETIRACETAM [Concomitant]
     Active Substance: LEVETIRACETAM
     Dosage: DAILY DOSE: 400 MG
     Route: 048
     Dates: start: 20190112, end: 20190527
  23. CARBAMAZEPINE [Concomitant]
     Active Substance: CARBAMAZEPINE
     Indication: Infantile spasms
     Dosage: DAILY DOSE: 80 MG
     Route: 048
  24. MAGNESIUM OXIDE [Concomitant]
     Active Substance: MAGNESIUM OXIDE
     Indication: Product used for unknown indication
     Dosage: DAILY DOSE: 330 MG
     Route: 048
     Dates: start: 20181008, end: 20190809
  25. MAGNESIUM OXIDE [Concomitant]
     Active Substance: MAGNESIUM OXIDE
     Dosage: DAILY DOSE: 500 MG
     Route: 048
     Dates: start: 20190810, end: 20191007
  26. TOPIRAMATE [Concomitant]
     Active Substance: TOPIRAMATE
     Indication: Infantile spasms
     Dosage: DAILY DOSE: 30 MG
     Route: 048
     Dates: start: 20190419, end: 20190514
  27. TOPIRAMATE [Concomitant]
     Active Substance: TOPIRAMATE
     Dosage: DAILY DOSE: 20 MG
     Route: 048
     Dates: start: 20190308, end: 20190418
  28. TRICLOFOS SODIUM [Concomitant]
     Active Substance: TRICLOFOS SODIUM
     Indication: Prophylaxis
     Dosage: DAILY DOSE: 6 ML
     Route: 048
     Dates: start: 20190515, end: 20190516
  29. TRICLOFOS SODIUM [Concomitant]
     Active Substance: TRICLOFOS SODIUM
     Dosage: DAILY DOSE: 5.6 ML
     Route: 048
     Dates: start: 20190702, end: 20190702
  30. TRICLOFOS SODIUM [Concomitant]
     Active Substance: TRICLOFOS SODIUM
     Dosage: DAILY DOSE: 6.4 ML
     Route: 048
     Dates: start: 20190809, end: 20190809
  31. CHLORAL HYDRATE [Concomitant]
     Active Substance: CHLORAL HYDRATE
     Indication: Prophylaxis
     Dosage: DAILY DOSE: 250 MG
     Route: 065
     Dates: start: 20190516, end: 20190516
  32. VALPROATE SODIUM [Concomitant]
     Active Substance: VALPROATE SODIUM
     Indication: Infantile spasms
     Dosage: DAILY DOSE: 450 MG
     Route: 048
     Dates: start: 20190925, end: 20191007
  33. LEVETIRACETAM [Concomitant]
     Active Substance: LEVETIRACETAM
     Indication: Infantile spasms
     Dosage: DAILY DOSE: 500 MG
     Route: 048
     Dates: start: 20190528

REACTIONS (5)
  - Magnetic resonance imaging head abnormal [Recovered/Resolved]
  - Asthma [Recovering/Resolving]
  - Bronchitis [Recovering/Resolving]
  - Upper respiratory tract inflammation [Recovered/Resolved]
  - Constipation [Recovering/Resolving]

NARRATIVE: CASE EVENT DATE: 20190419
